FAERS Safety Report 26100916 (Version 1)
Quarter: 2025Q4

REPORT INFORMATION
  Report Type: Spontaneous
  Country: US (occurrence: US)
  Receive Date: 20251128
  Receipt Date: 20251128
  Transmission Date: 20260118
  Serious: No
  Sender: MERCK SHARP & DOHME LLC
  Company Number: US-009507513-2353030

PATIENT
  Sex: Female
  Weight: 53.1 kg

DRUGS (19)
  1. WINREVAIR [Suspect]
     Active Substance: SOTATERCEPT-CSRK
     Indication: Product used for unknown indication
     Route: 065
  2. WINREVAIR [Suspect]
     Active Substance: SOTATERCEPT-CSRK
  3. WINREVAIR [Suspect]
     Active Substance: SOTATERCEPT-CSRK
  4. WINREVAIR [Suspect]
     Active Substance: SOTATERCEPT-CSRK
  5. REMODULIN [Suspect]
     Active Substance: TREPROSTINIL
     Indication: Pulmonary arterial hypertension
     Dosage: CONTINUOUS VIA INTRAVENOUS (IV) ROUTE, CONCENTRATION 2.5 MG/ML
     Route: 041
     Dates: start: 20220706
  6. Vitamin b-12 (Cyanocobalamin) [Concomitant]
  7. FUROSEMIDE [Concomitant]
     Active Substance: FUROSEMIDE
  8. Trelegy ellipta (Fluticasone Furoate, Umeclidinium bromide, Vilante... [Concomitant]
  9. TADALAFIL [Concomitant]
     Active Substance: TADALAFIL
  10. ATORVASTATIN CALCIUM [Concomitant]
     Active Substance: ATORVASTATIN CALCIUM
  11. ALBUTEROL SULFATE [Concomitant]
     Active Substance: ALBUTEROL SULFATE
  12. Multivitamins (Ascorbic acid, Ergocalciferol, Folic acid, Nicotinam... [Concomitant]
  13. PREDNISONE [Concomitant]
     Active Substance: PREDNISONE
  14. SPIRONOLACTONE [Concomitant]
     Active Substance: SPIRONOLACTONE
  15. AMBRISENTAN [Concomitant]
     Active Substance: AMBRISENTAN
  16. DOXEPIN HYDROCHLORIDE [Concomitant]
     Active Substance: DOXEPIN HYDROCHLORIDE
  17. Aspirin EC (Acetylsalicylic acid) [Concomitant]
  18. EUTHYROX [Concomitant]
     Active Substance: LEVOTHYROXINE SODIUM
  19. OXYGEN [Concomitant]
     Active Substance: OXYGEN

REACTIONS (1)
  - Oxygen consumption increased [Unknown]
